FAERS Safety Report 8600934 (Version 4)
Quarter: 2012Q4

REPORT INFORMATION
  Report Type: 
  Country: FR (occurrence: FR)
  Receive Date: 20120525
  Receipt Date: 20120924
  Transmission Date: 20130627
  Serious: Yes (Hospitalization, Disabling)
  Sender: FDA-Public Use
  Company Number: FR-009507513-2012SP020895

PATIENT
  Age: 59 Year
  Sex: Male
  Weight: 55 kg

DRUGS (5)
  1. BOCEPREVIR [Suspect]
     Indication: HEPATITIS C
     Dosage: 800 mg, TID
     Dates: start: 20110927, end: 20120726
  2. PEGINTERFERON ALFA-2B [Suspect]
     Indication: HEPATITIS C
     Dosage: 80 ?g, QW
     Dates: start: 20110825, end: 20120726
  3. RIBAVIRIN [Suspect]
     Indication: HEPATITIS C
     Dosage: 800 mg, QD
     Dates: start: 20110825, end: 20120726
  4. ISENTRESS [Concomitant]
     Indication: HIV INFECTION
     Dosage: 400 mg, BID
     Dates: start: 20080818
  5. TRUVADA [Concomitant]
     Indication: HIV INFECTION
     Dosage: 1 DF, QD
     Dates: start: 20090730

REACTIONS (8)
  - Malnutrition [Unknown]
  - Autonomic nervous system imbalance [Unknown]
  - Decreased appetite [Unknown]
  - Hypotension [Unknown]
  - Asthenia [Unknown]
  - Anaemia [Unknown]
  - Prostatitis [Recovered/Resolved]
  - General physical health deterioration [Unknown]
